FAERS Safety Report 14867510 (Version 4)
Quarter: 2019Q1

REPORT INFORMATION
  Report Type: Report from Study
  Country: GB (occurrence: GB)
  Receive Date: 20180508
  Receipt Date: 20190320
  Transmission Date: 20190417
  Serious: Yes (Hospitalization)
  Sender: FDA-Public Use
  Company Number: GB-ASTRAZENECA-2018SE58786

PATIENT
  Age: 25136 Day
  Sex: Female
  Weight: 55.7 kg

DRUGS (9)
  1. ASPIRIN. [Concomitant]
     Active Substance: ASPIRIN
     Indication: ARRHYTHMIA
     Route: 048
     Dates: start: 20161024
  2. BETAMETHASONE. [Concomitant]
     Active Substance: BETAMETHASONE
     Indication: RASH
     Dosage: 0.1% AS REQUIRED
     Route: 061
     Dates: start: 20180314
  3. DIPROBASE [Concomitant]
     Active Substance: CHLOROCRESOL
     Indication: SKIN IRRITATION
     Dosage: 1.0G AS REQUIRED
     Route: 061
     Dates: start: 20180214
  4. MEDI4736 [Suspect]
     Active Substance: DURVALUMAB
     Indication: NEOPLASM MALIGNANT
     Route: 042
     Dates: start: 20180115
  5. AZD9150 [Suspect]
     Active Substance: DANVATIRSEN
     Indication: NEOPLASM MALIGNANT
     Route: 042
     Dates: start: 20180108
  6. ATENOLOL. [Concomitant]
     Active Substance: ATENOLOL
     Indication: HYPERTENSION
     Route: 048
     Dates: start: 1997
  7. VITAMIN B NOS [Concomitant]
     Active Substance: VITAMIN B
     Indication: VITAMIN SUPPLEMENTATION
     Route: 048
     Dates: start: 20171123
  8. DIFFLAM [Concomitant]
     Active Substance: BENZYDAMINE HYDROCHLORIDE
     Indication: ORAL PAIN
     Route: 048
     Dates: start: 20180205
  9. IBUPROFEN. [Concomitant]
     Active Substance: IBUPROFEN
     Indication: PAIN
     Dosage: 400.0MG AS REQUIRED
     Route: 048
     Dates: start: 20180205

REACTIONS (1)
  - Lower respiratory tract infection [Recovered/Resolved]

NARRATIVE: CASE EVENT DATE: 20180427
